FAERS Safety Report 6413031-7 (Version None)
Quarter: 2009Q4

REPORT INFORMATION
  Report Type: 
  Country: None (occurrence: None)
  Receive Date: 20091023
  Receipt Date: 20091023
  Transmission Date: 20100525
  Serious: No
  Sender: FDA-Public Use
  Company Number: None

PATIENT

DRUGS (1)
  1. ROCURONIUM BROMIDE [Suspect]
     Indication: NEUROMUSCULAR BLOCKING THERAPY
     Dosage: WEEK OF OCT. 11

REACTIONS (3)
  - ANAESTHETIC COMPLICATION [None]
  - NEUROMUSCULAR BLOCK PROLONGED [None]
  - PRODUCT QUALITY ISSUE [None]
